FAERS Safety Report 18430467 (Version 1)
Quarter: 2020Q4

REPORT INFORMATION
  Report Type: Spontaneous
  Country: US (occurrence: US)
  Receive Date: 20201027
  Receipt Date: 20201027
  Transmission Date: 20210114
  Serious: No
  Sender: FDA-Public Use
  Company Number: US-TEVA-2020-US-1841484

PATIENT
  Sex: Female

DRUGS (1)
  1. MUPIROCIN TEVA [Suspect]
     Active Substance: MUPIROCIN
     Indication: SKIN IRRITATION
     Route: 065

REACTIONS (2)
  - Product use in unapproved indication [Unknown]
  - Acne [Unknown]
